FAERS Safety Report 10361185 (Version 2)
Quarter: 2014Q4

REPORT INFORMATION
  Report Type: Spontaneous
  Country: US (occurrence: None)
  Receive Date: 20140731
  Receipt Date: 20141022
  Transmission Date: 20150528
  Serious: Yes (Death, Hospitalization)
  Sender: FDA-Public Use
  Company Number: 2014HINLIT0673

PATIENT
  Age: 45 Year
  Sex: Female

DRUGS (5)
  1. HYDROMORPHONE [Concomitant]
     Active Substance: HYDROMORPHONE
  2. NICARDIPINE [Concomitant]
     Active Substance: NICARDIPINE
  3. VERAPAMIL [Concomitant]
     Active Substance: VERAPAMIL HYDROCHLORIDE
  4. DIHYDROERGOTAMINE MESILATE [Concomitant]
  5. ESCITALOPRAM [Suspect]
     Active Substance: ESCITALOPRAM OXALATE
     Indication: DEPRESSION

REACTIONS (6)
  - Subarachnoid haemorrhage [None]
  - Cerebral vasoconstriction [None]
  - Posterior reversible encephalopathy syndrome [None]
  - Brain oedema [None]
  - Coma [None]
  - Cerebral infarction [None]
